FAERS Safety Report 5996882-2 (Version None)
Quarter: 2008Q4

REPORT INFORMATION
  Report Type: 
  Country: None (occurrence: None)
  Receive Date: 20081208
  Receipt Date: 20081125
  Transmission Date: 20090506
  Serious: Yes (Other)
  Sender: FDA-Public Use
  Company Number: CHPA2008US21054

PATIENT
  Sex: Female

DRUGS (1)
  1. THERAFLU FLU AND SORE THROAT (NCH) (PHENIRAMINE MALEATE, PHENYLEPHRINE [Suspect]
     Dosage: 1 DF, ONCE/SINGLE, ORAL
     Route: 048
     Dates: start: 20081124, end: 20081124

REACTIONS (2)
  - DYSPNOEA [None]
  - PHARYNGEAL OEDEMA [None]
